FAERS Safety Report 9829075 (Version 1)
Quarter: 2014Q1

REPORT INFORMATION
  Report Type: Spontaneous
  Country: HU (occurrence: HU)
  Receive Date: 20140119
  Receipt Date: 20140119
  Transmission Date: 20141002
  Serious: Yes (Hospitalization)
  Sender: FDA-Public Use
  Company Number: US-ASTRAZENECA-2014SE02969

PATIENT
  Age: 5 Month
  Sex: Female

DRUGS (1)
  1. SYNAGIS [Suspect]
     Indication: ANTIVIRAL PROPHYLAXIS
     Dosage: SYNAGIS DOSE WAS GIVEN BASED ON THE BODY WEIGHT, MONTHLY
     Route: 030
     Dates: start: 20131106

REACTIONS (2)
  - Upper respiratory tract inflammation [Unknown]
  - Dyspnoea [Unknown]
